FAERS Safety Report 4877180-7 (Version None)
Quarter: 2005Q4

REPORT INFORMATION
  Report Type: 
  Country: None (occurrence: None)
  Receive Date: 20051206
  Receipt Date: 20050929
  Transmission Date: 20060501
  Serious: No
  Sender: FDA-Public Use
  Company Number: USA0509109525

PATIENT
  Age: 29 Year
  Sex: Female

DRUGS (6)
  1. CYMBALTA [Suspect]
     Indication: DEPRESSION
     Dates: start: 20040101, end: 20050101
  2. PROZAC [Suspect]
     Indication: DEPRESSION
     Dosage: 20 MG
     Dates: start: 20050101, end: 20050101
  3. FLUOXETINE [Concomitant]
  4. TRILEPTAL [Concomitant]
  5. KLONOPIN [Concomitant]
  6. ABILIFY [Concomitant]

REACTIONS (5)
  - BREAST ENGORGEMENT [None]
  - DEPRESSION [None]
  - FEELING ABNORMAL [None]
  - HYPERPROLACTINAEMIA [None]
  - LACTATION DISORDER [None]
